FAERS Safety Report 14075103 (Version 1)
Quarter: 2017Q4

REPORT INFORMATION
  Report Type: Spontaneous
  Country: CN (occurrence: CN)
  Receive Date: 20171011
  Receipt Date: 20171011
  Transmission Date: 20180321
  Serious: Yes (Hospitalization)
  Sender: FDA-Public Use
  Company Number: CN-PFIZER INC-2017436777

PATIENT
  Age: 68 Year
  Sex: Male

DRUGS (3)
  1. ZYVOX [Suspect]
     Active Substance: LINEZOLID
     Indication: INFECTION
     Dosage: 600 MG, 2X/DAY
     Route: 041
     Dates: start: 20170802, end: 20170805
  2. TIENAM [Suspect]
     Active Substance: CILASTATIN SODIUM\IMIPENEM
     Indication: INFECTION
     Dosage: 1 G, 3X/DAY
     Route: 041
     Dates: start: 20170802, end: 20170805
  3. VORICONAZOLE. [Suspect]
     Active Substance: VORICONAZOLE
     Indication: INFECTION
     Dosage: 400 MG, 1X/DAY
     Route: 041
     Dates: start: 20170802, end: 20170803

REACTIONS (1)
  - Mental disorder [Recovering/Resolving]

NARRATIVE: CASE EVENT DATE: 20170805
